FAERS Safety Report 21899016 (Version 1)
Quarter: 2023Q1

REPORT INFORMATION
  Report Type: Spontaneous
  Country: US (occurrence: None)
  Receive Date: 20230120
  Receipt Date: 20230120
  Transmission Date: 20230417
  Serious: Yes (Hospitalization)
  Sender: FDA-Public Use
  Company Number: None

PATIENT
  Age: 52 Year
  Sex: Male

DRUGS (13)
  1. OPSUMIT [Suspect]
     Active Substance: MACITENTAN
     Indication: Pulmonary arterial hypertension
     Dosage: FREQUENCY : DAILY;?
     Route: 048
     Dates: start: 20161020
  2. SILDENAFIL [Concomitant]
     Active Substance: SILDENAFIL
  3. SELEXIPAG [Concomitant]
     Active Substance: SELEXIPAG
  4. TRAMADOL [Concomitant]
     Active Substance: TRAMADOL
  5. ALBUTEROL [Concomitant]
     Active Substance: ALBUTEROL
  6. FUROSEMIDE [Concomitant]
     Active Substance: FUROSEMIDE
  7. FUROSEMIDE [Concomitant]
     Active Substance: FUROSEMIDE
  8. ONDANSETRON [Concomitant]
     Active Substance: ONDANSETRON
  9. AMIODARONE [Concomitant]
     Active Substance: AMIODARONE
  10. symbicort HFA [Concomitant]
  11. ALBUTEROL SULFATE [Concomitant]
     Active Substance: ALBUTEROL SULFATE
  12. EPLERENONE [Concomitant]
     Active Substance: EPLERENONE
  13. WARFARIN [Concomitant]
     Active Substance: WARFARIN

REACTIONS (3)
  - Acute respiratory failure [None]
  - Pneumonia [None]
  - Chest X-ray abnormal [None]

NARRATIVE: CASE EVENT DATE: 20230107
